FAERS Safety Report 6499910-3 (Version None)
Quarter: 2009Q4

REPORT INFORMATION
  Report Type: 
  Country: None (occurrence: None)
  Receive Date: 20091214
  Receipt Date: 20091214
  Transmission Date: 20100525
  Serious: Yes (Life-Threatening, Hospitalization)
  Sender: FDA-Public Use
  Company Number: None

PATIENT
  Sex: Male
  Weight: 81.6475 kg

DRUGS (1)
  1. ENBREL [Suspect]
     Indication: RHEUMATOID ARTHRITIS
     Dosage: SHOT ONCE A WEEK, FROM WHEN FIRST CAME OUT

REACTIONS (4)
  - BRAIN NEOPLASM [None]
  - CONVULSION [None]
  - NON-HODGKIN'S LYMPHOMA [None]
  - PARALYSIS [None]
